FAERS Safety Report 17836282 (Version 1)
Quarter: 2020Q2

REPORT INFORMATION
  Report Type: Report from Study
  Country: GB (occurrence: GB)
  Receive Date: 20200529
  Receipt Date: 20200529
  Transmission Date: 20200714
  Serious: Yes (Death, Hospitalization, Other)
  Sender: FDA-Public Use
  Company Number: GB-ROCHE-2605276

PATIENT

DRUGS (5)
  1. AZATHIOPRINE. [Suspect]
     Active Substance: AZATHIOPRINE
     Indication: VASCULITIS
     Route: 065
  2. MYCOPHENOLATE MOFETIL. [Suspect]
     Active Substance: MYCOPHENOLATE MOFETIL
     Indication: VASCULITIS
     Route: 065
  3. METHYLPREDNISOLONE. [Suspect]
     Active Substance: METHYLPREDNISOLONE
     Indication: VASCULITIS
     Dosage: CUMULATIVE DOSE RANGE: 0.5-3 G
     Route: 042
  4. RITUXIMAB. [Suspect]
     Active Substance: RITUXIMAB
     Indication: VASCULITIS
     Dosage: 375 MG PER SQUARE METRE OF BODY SURFACE AREA PER WEEK FOR 4 WEEKS OR AS 1 G EVERY 2 WEEKS FOR 2 DOSE
     Route: 041
  5. CYCLOPHOSPHAMIDE. [Suspect]
     Active Substance: CYCLOPHOSPHAMIDE
     Indication: VASCULITIS
     Route: 065

REACTIONS (6)
  - Thrombocytopenia [Unknown]
  - Bone marrow failure [Unknown]
  - Infection [Fatal]
  - Leukopenia [Unknown]
  - Osteoporotic fracture [Unknown]
  - Osteoporosis [Unknown]
